FAERS Safety Report 5670022-1 (Version None)
Quarter: 2008Q1

REPORT INFORMATION
  Report Type: 
  Country: None (occurrence: None)
  Receive Date: 20080312
  Receipt Date: 20080225
  Transmission Date: 20080703
  Serious: Yes (Hospitalization)
  Sender: FDA-Public Use
  Company Number: DSA_31513_2008

PATIENT
  Age: 89 Year
  Sex: Female

DRUGS (7)
  1. ENALAPRIL MALEATE [Suspect]
     Indication: HYPERTENSION
     Dosage: ( 5 MG QD ORAL)
     Route: 048
  2. ESCITALOPRAM OXALATE [Concomitant]
  3. FENTANYL [Concomitant]
  4. FERROUS SULFATE TAB [Concomitant]
  5. FUROSEMIDE [Concomitant]
  6. LEVOTHYROXINE SODIUM [Concomitant]
  7. PREGABALIN [Concomitant]

REACTIONS (2)
  - DYSKINESIA [None]
  - RHABDOMYOLYSIS [None]
